FAERS Safety Report 11698693 (Version 3)
Quarter: 2016Q1

REPORT INFORMATION
  Report Type: Spontaneous
  Country: US (occurrence: US)
  Receive Date: 20151104
  Receipt Date: 20160308
  Transmission Date: 20160525
  Serious: Yes (Hospitalization)
  Sender: FDA-Public Use
  Company Number: US-ASTRAZENECA-2015SF04549

PATIENT
  Age: 58 Year
  Sex: Male
  Weight: 79 kg

DRUGS (12)
  1. ASPIRIN. [Concomitant]
     Active Substance: ASPIRIN
  2. ATIVAN [Concomitant]
     Active Substance: LORAZEPAM
  3. MULTIVITAMIN [Concomitant]
     Active Substance: VITAMINS
  4. ZOLADEX [Suspect]
     Active Substance: GOSERELIN ACETATE
     Indication: PROSTATE CANCER
     Route: 058
     Dates: end: 20150518
  5. TUMS EX [Concomitant]
     Active Substance: CALCIUM CARBONATE
  6. PRISTIQ EXTENDED RELEASE [Concomitant]
     Active Substance: DESVENLAFAXINE SUCCINATE
  7. XALKORI [Suspect]
     Active Substance: CRIZOTINIB
     Indication: PROSTATE CANCER METASTATIC
     Route: 048
     Dates: start: 20150226, end: 20150518
  8. ENZALUTAMIDE [Suspect]
     Active Substance: ENZALUTAMIDE
     Indication: PROSTATE CANCER METASTATIC
     Route: 048
     Dates: start: 20150226, end: 20150518
  9. LISINOPRIL. [Suspect]
     Active Substance: LISINOPRIL
     Route: 048
  10. ADVAIR HFA [Concomitant]
     Active Substance: FLUTICASONE PROPIONATE\SALMETEROL XINAFOATE
  11. ZOLADEX [Suspect]
     Active Substance: GOSERELIN ACETATE
     Indication: PROSTATE CANCER
     Route: 058
     Dates: start: 20130116, end: 20150313
  12. MOTRIN [Concomitant]
     Active Substance: IBUPROFEN

REACTIONS (11)
  - Intervertebral disc annular tear [Unknown]
  - Paraesthesia [Unknown]
  - Intervertebral disc degeneration [Unknown]
  - Pain [Unknown]
  - Spinal column stenosis [Unknown]
  - Spinal pain [Unknown]
  - Metastases to spine [Unknown]
  - Spinal compression fracture [Unknown]
  - Nerve root compression [Unknown]
  - Urinary hesitation [Recovered/Resolved]
  - Depression [Unknown]

NARRATIVE: CASE EVENT DATE: 20150518
